FAERS Safety Report 24590313 (Version 2)
Quarter: 2024Q4

REPORT INFORMATION
  Report Type: Spontaneous
  Country: GB (occurrence: GB)
  Receive Date: 20241107
  Receipt Date: 20241122
  Transmission Date: 20250115
  Serious: Yes (Life-Threatening, Hospitalization, Congenital Anomaly)
  Sender: TEVA
  Company Number: GB-TORRENT-00027318

PATIENT
  Sex: Male

DRUGS (1)
  1. WARFARIN [Suspect]
     Active Substance: WARFARIN
     Indication: Maternal-foetal therapy
     Route: 064

REACTIONS (2)
  - Foetal warfarin syndrome [Unknown]
  - Foetal exposure during pregnancy [Unknown]
